FAERS Safety Report 4496718-5 (Version None)
Quarter: 2004Q4

REPORT INFORMATION
  Report Type: 
  Country: None (occurrence: None)
  Receive Date: 20040923
  Receipt Date: 20040624
  Transmission Date: 20050328
  Serious: Yes (Life-Threatening, Hospitalization, Other)
  Sender: FDA-Public Use
  Company Number: WAES 0406USA02313

PATIENT
  Age: 73 Year
  Sex: Female
  Weight: 52.6173 kg

DRUGS (13)
  1. INVANZ [Suspect]
     Indication: PYREXIA
     Dosage: 0.50 GM/DAILY/IV
     Route: 042
     Dates: start: 20040605, end: 20040616
  2. PREVACID [Concomitant]
  3. ZOFRAN [Concomitant]
  4. ACETAMINOPHEN [Concomitant]
  5. CALCIUM ACETATE [Concomitant]
  6. DIGOXIN [Concomitant]
  7. EPOGEN [Concomitant]
  8. FOLIC ACID [Concomitant]
  9. FUROSEMIDE [Concomitant]
  10. METOCLOPRAMIDE [Concomitant]
  11. NANDROLONE DECANOATE [Concomitant]
  12. SODIUM FERRIC GLUCONATE COMPLEX [Concomitant]
  13. VANCOMYCIN [Concomitant]

REACTIONS (1)
  - GRAND MAL CONVULSION [None]
